FAERS Safety Report 13560675 (Version 2)
Quarter: 2017Q2

REPORT INFORMATION
  Report Type: Spontaneous
  Country: US (occurrence: US)
  Receive Date: 20170518
  Receipt Date: 20170518
  Transmission Date: 20170830
  Serious: No
  Sender: FDA-Public Use
  Company Number: US-ROCHE-796458

PATIENT
  Sex: Female

DRUGS (1)
  1. ANAPROX [Suspect]
     Active Substance: NAPROXEN SODIUM
     Indication: ARTHRITIS
     Dosage: DURATION OF USE: 20 YEARS, FREQUENCY: AS NEEDED
     Route: 048

REACTIONS (9)
  - Feeling jittery [Recovered/Resolved]
  - Fluid retention [Unknown]
  - Dysphagia [Unknown]
  - Blood pressure increased [Recovered/Resolved]
  - Product quality issue [Unknown]
  - Muscle spasms [Recovered/Resolved]
  - Swelling [Unknown]
  - Muscular weakness [Recovered/Resolved]
  - Abdominal discomfort [Recovered/Resolved]
